FAERS Safety Report 24940446 (Version 1)
Quarter: 2025Q1

REPORT INFORMATION
  Report Type: Report from Study
  Country: US (occurrence: US)
  Receive Date: 20250207
  Receipt Date: 20250207
  Transmission Date: 20250408
  Serious: Yes (Other)
  Sender: ALEXION PHARMACEUTICALS
  Company Number: US-AstraZeneca-CH-00797089A

PATIENT
  Weight: 91 kg

DRUGS (1)
  1. SELUMETINIB [Suspect]
     Active Substance: SELUMETINIB
     Indication: Neurofibromatosis
     Dosage: 50 MILLIGRAM, BID

REACTIONS (3)
  - Metastases to spine [Unknown]
  - Hair growth abnormal [Unknown]
  - Product dose omission issue [Unknown]
